FAERS Safety Report 8774659 (Version 1)
Quarter: 2012Q4

REPORT INFORMATION
  Report Type: 
  Country: CH (occurrence: CH)
  Receive Date: 20120907
  Receipt Date: 20120907
  Transmission Date: 20130627
  Serious: Yes (Hospitalization)
  Sender: FDA-Public Use
  Company Number: CH-009507513-1208CHE011917

PATIENT

DRUGS (5)
  1. AMITRIPTYLINE HYDROCHLORIDE [Suspect]
     Indication: DEPRESSION
     Dosage: 1 DF, tid
     Route: 048
     Dates: start: 1987, end: 201204
  2. DALMADORM [Suspect]
     Indication: SLEEP DISORDER
     Dosage: 90 mg, 30 mg three units, hs
     Route: 048
     Dates: start: 20120330, end: 20120330
  3. ANXIOLIT [Concomitant]
     Dosage: 15 mg, 4 per 1 day, qd
  4. DIOVAN [Concomitant]
     Dosage: 160 mg, qd
     Route: 048
  5. MONURIL [Concomitant]
     Dosage: 3 g, Once
     Route: 048
     Dates: start: 20120330, end: 20120330

REACTIONS (3)
  - Fall [Recovered/Resolved]
  - Inappropriate antidiuretic hormone secretion [Recovered/Resolved]
  - Accidental overdose [Recovered/Resolved]
